FAERS Safety Report 6573671-1 (Version None)
Quarter: 2010Q1

REPORT INFORMATION
  Report Type: 
  Country: None (occurrence: None)
  Receive Date: 20100204
  Receipt Date: 20100204
  Transmission Date: 20100710
  Serious: Yes (Life-Threatening, Hospitalization, Disabling)
  Sender: FDA-Public Use
  Company Number: None

PATIENT
  Sex: Male
  Weight: 72.5755 kg

DRUGS (1)
  1. SOTALOL HCL [Suspect]
     Indication: ATRIAL FIBRILLATION
     Dosage: 40 MG BID P.O.
     Route: 048
     Dates: start: 20090505, end: 20091101

REACTIONS (5)
  - CARDIAC ARREST [None]
  - FACIAL BONES FRACTURE [None]
  - FACIAL PALSY [None]
  - FALL [None]
  - SYNCOPE [None]
